FAERS Safety Report 8609520-7 (Version None)
Quarter: 2012Q3

REPORT INFORMATION
  Report Type: 
  Country: None (occurrence: None)
  Receive Date: 20120821
  Receipt Date: 20120816
  Transmission Date: 20120928
  Serious: Yes (Other)
  Sender: FDA-Public Use
  Company Number: AR-PFIZER INC-2012194327

PATIENT
  Age: 61 Year
  Sex: Female

DRUGS (3)
  1. LOTRIAL [Concomitant]
     Dosage: UNK
  2. SOMAVERT [Suspect]
     Indication: ACROMEGALY
     Dosage: 10 MG, 1XDAY, 7INJECTIONS/WEEK
     Route: 058
     Dates: start: 20110701
  3. OMEPRAZOLE [Concomitant]
     Dosage: UNK

REACTIONS (1)
  - LUNG NEOPLASM [None]
